FAERS Safety Report 14723445 (Version 11)
Quarter: 2021Q4

REPORT INFORMATION
  Report Type: Other
  Country: DK (occurrence: DK)
  Receive Date: 20180405
  Receipt Date: 20211231
  Transmission Date: 20220303
  Serious: Yes (Hospitalization)
  Sender: FDA-Public Use
  Company Number: DK-002147023-PHHY2018DK035015

PATIENT
  Age: 81 Year
  Sex: Female
  Weight: 50 kg

DRUGS (28)
  1. HERCEPTIN [Suspect]
     Active Substance: TRASTUZUMAB
     Indication: Chronic lymphocytic leukaemia
     Route: 065
  2. HERCEPTIN [Suspect]
     Active Substance: TRASTUZUMAB
     Indication: Metastases to lung
  3. FOSAMAX [Suspect]
     Active Substance: ALENDRONATE SODIUM
     Indication: Chronic lymphocytic leukaemia
     Route: 048
     Dates: start: 20150409
  4. FOSAMAX [Suspect]
     Active Substance: ALENDRONATE SODIUM
     Indication: Osteoporosis
  5. CISPLATIN [Suspect]
     Active Substance: CISPLATIN
     Indication: Chronic lymphocytic leukaemia
     Route: 065
  6. CYTARABINE [Suspect]
     Active Substance: CYTARABINE
     Indication: Product used for unknown indication
     Route: 065
  7. GLIVEC [Suspect]
     Active Substance: IMATINIB MESYLATE
     Indication: Chronic lymphocytic leukaemia
     Dosage: 100 MG-400 MG TABLET X 3 OR 1 TABLET X 1
     Route: 048
     Dates: start: 20141028
  8. GLIVEC [Suspect]
     Active Substance: IMATINIB MESYLATE
     Indication: Systemic scleroderma
  9. ALKERAN [Suspect]
     Active Substance: MELPHALAN
     Indication: Product used for unknown indication
     Route: 065
  10. CARBOPLATIN [Suspect]
     Active Substance: CARBOPLATIN
     Indication: Chronic lymphocytic leukaemia
     Route: 065
  11. CYCLOPHOSPHAMIDE [Suspect]
     Active Substance: CYCLOPHOSPHAMIDE
     Indication: Chronic lymphocytic leukaemia
     Route: 065
  12. ONIVYDE [Suspect]
     Active Substance: IRINOTECAN HYDROCHLORIDE
     Indication: Chronic lymphocytic leukaemia
     Route: 065
  13. CAPECITABINE [Suspect]
     Active Substance: CAPECITABINE
     Indication: Chronic lymphocytic leukaemia
     Route: 048
  14. TRASTUZUMAB [Suspect]
     Active Substance: TRASTUZUMAB
     Indication: Chronic lymphocytic leukaemia
     Route: 065
  15. THALIDOMIDE [Suspect]
     Active Substance: THALIDOMIDE
     Indication: Chronic lymphocytic leukaemia
     Route: 065
  16. PREDNISOLONE [Suspect]
     Active Substance: PREDNISOLONE
     Indication: Metastases to lung
     Dosage: LAST DOSE ON 31/OCT/2016
     Route: 048
     Dates: start: 20151021
  17. PEMETREXED DISODIUM [Suspect]
     Active Substance: PEMETREXED DISODIUM
     Indication: Chronic lymphocytic leukaemia
     Route: 065
  18. XGEVA [Suspect]
     Active Substance: DENOSUMAB
     Indication: Chronic lymphocytic leukaemia
     Dosage: MOST RECENT DOSE ON 05/MAR/2017
     Route: 058
     Dates: start: 20150409
  19. XGEVA [Suspect]
     Active Substance: DENOSUMAB
     Indication: Metastases to bone
  20. VINORELBINE [Suspect]
     Active Substance: VINORELBINE TARTRATE
     Indication: Chronic lymphocytic leukaemia
     Route: 065
  21. ALENDRONAT [Suspect]
     Active Substance: ALENDRONATE SODIUM
     Indication: Osteoporosis
     Dosage: 70 MG, QWK?REPORTED AS ALENDRONAT ^BLUEFISH^
     Route: 048
  22. BLINATUMOMAB [Suspect]
     Active Substance: BLINATUMOMAB
     Indication: Product used for unknown indication
     Route: 065
  23. TEMOZOLOMIDE [Suspect]
     Active Substance: TEMOZOLOMIDE
     Indication: Chronic lymphocytic leukaemia
     Route: 065
  24. IRINOTECAN [Suspect]
     Active Substance: IRINOTECAN
     Indication: Chronic lymphocytic leukaemia
     Route: 065
  25. OXALIPLATIN [Suspect]
     Active Substance: OXALIPLATIN
     Indication: Product used for unknown indication
     Route: 065
  26. VINCRISTINE [Suspect]
     Active Substance: VINCRISTINE
     Indication: Product used for unknown indication
     Route: 065
  27. ALIMTA [Suspect]
     Active Substance: PEMETREXED DISODIUM
     Indication: Chronic lymphocytic leukaemia
     Route: 065
  28. PREDNISOLONE [Concomitant]
     Active Substance: PREDNISOLONE
     Indication: Product used for unknown indication
     Dosage: 7.5 MG, QD
     Route: 048
     Dates: start: 20151021, end: 20161031

REACTIONS (3)
  - Osteonecrosis of jaw [Recovered/Resolved]
  - Jaw operation [Unknown]
  - Off label use [Unknown]

NARRATIVE: CASE EVENT DATE: 20150101
